FAERS Safety Report 21691816 (Version 1)
Quarter: 2022Q4

REPORT INFORMATION
  Report Type: Spontaneous
  Country: CN (occurrence: CN)
  Receive Date: 20221207
  Receipt Date: 20221207
  Transmission Date: 20230113
  Serious: Yes (Other)
  Sender: FDA-Public Use
  Company Number: None

PATIENT
  Age: 35 Year
  Sex: Female
  Weight: 52.1 kg

DRUGS (4)
  1. CYCLOPHOSPHAMIDE [Suspect]
     Active Substance: CYCLOPHOSPHAMIDE
     Indication: Glomerulonephritis membranous
     Dosage: 400 MG, ONCE DAILY, DILUTED IN 250 ML OF 0.9% SODIUM CHLORIDE
     Route: 041
     Dates: start: 20221105, end: 20221105
  2. CYCLOPHOSPHAMIDE [Suspect]
     Active Substance: CYCLOPHOSPHAMIDE
     Dosage: 600 MG, ONCE DAILY, DILUTED IN 250 ML OF 0.9% SODIUM CHLORIDE
     Route: 041
     Dates: start: 20221106, end: 20221106
  3. SODIUM CHLORIDE [Suspect]
     Active Substance: SODIUM CHLORIDE
     Indication: Medication dilution
     Dosage: 250 ML, ONCE DAILY, USED TO DILUTE 400 MG OF CYCLOPHOSPHAMIDE
     Route: 041
     Dates: start: 20221105, end: 20221105
  4. SODIUM CHLORIDE [Suspect]
     Active Substance: SODIUM CHLORIDE
     Dosage: 250 ML, ONCE DAILY, USED TO DILUTE 600 MG OF CYCLOPHOSPHAMIDE
     Route: 041
     Dates: start: 20221106, end: 20221106

REACTIONS (1)
  - White blood cell count decreased [Recovered/Resolved]

NARRATIVE: CASE EVENT DATE: 20221122
